FAERS Safety Report 11329760 (Version 1)
Quarter: 2015Q3

REPORT INFORMATION
  Report Type: Spontaneous
  Country: US (occurrence: None)
  Receive Date: 20150730
  Receipt Date: 20150730
  Transmission Date: 20151125
  Serious: Yes (Hospitalization)
  Sender: FDA-Public Use
  Company Number: TPU2015-00373

PATIENT
  Age: 64 Year
  Sex: Female
  Weight: 53.98 kg

DRUGS (2)
  1. LIDODERM [Suspect]
     Active Substance: LIDOCAINE
     Indication: ARTHRALGIA
     Dosage: 1 PLASTER, 1 IN 1 D, TOPICAL
     Route: 061
     Dates: start: 20150416, end: 20150503
  2. LIDODERM [Suspect]
     Active Substance: LIDOCAINE
     Indication: BACK PAIN
     Dosage: 1 PLASTER, 1 IN 1 D, TOPICAL
     Route: 061
     Dates: start: 20150416, end: 20150503

REACTIONS (2)
  - Fall [None]
  - Upper limb fracture [None]

NARRATIVE: CASE EVENT DATE: 20150503
